FAERS Safety Report 8480244-2 (Version None)
Quarter: 2012Q2

REPORT INFORMATION
  Report Type: 
  Country: None (occurrence: None)
  Receive Date: 20120629
  Receipt Date: 20120618
  Transmission Date: 20120825
  Serious: No
  Sender: FDA-Public Use
  Company Number: US-ASTRAZENECA-2012SE40707

PATIENT
  Age: 42 Year
  Sex: Male
  Weight: 68 kg

DRUGS (15)
  1. SEROQUEL XR [Suspect]
     Indication: MANIA
     Route: 048
  2. SEROQUEL XR [Suspect]
     Route: 048
  3. SEROQUEL XR [Suspect]
     Route: 048
  4. SEROQUEL XR [Suspect]
     Route: 048
  5. SEROQUEL XR [Suspect]
     Route: 048
  6. SEROQUEL XR [Suspect]
     Indication: BIPOLAR DISORDER
     Route: 048
  7. VICODIN [Concomitant]
  8. SEROQUEL XR [Suspect]
     Route: 048
  9. SEROQUEL XR [Suspect]
     Dosage: 200 MG SAMPLES WITH THE DOCTOR'S INSTRUCTIONS TO CUT IN HALF
     Route: 048
  10. SEROQUEL XR [Suspect]
     Dosage: 200 MG SAMPLES WITH THE DOCTOR'S INSTRUCTIONS TO CUT IN HALF
     Route: 048
  11. SEROQUEL XR [Suspect]
     Route: 048
  12. TYLENOL III [Concomitant]
  13. SEROQUEL XR [Suspect]
     Route: 048
  14. SEROQUEL XR [Suspect]
     Route: 048
  15. KLONOPIN [Suspect]
     Route: 065

REACTIONS (4)
  - DRUG INEFFECTIVE [None]
  - DRUG PRESCRIBING ERROR [None]
  - INTENTIONAL DRUG MISUSE [None]
  - INSOMNIA [None]
